FAERS Safety Report 9065462 (Version 1)
Quarter: 2013Q1

REPORT INFORMATION
  Report Type: Spontaneous
  Country: US (occurrence: US)
  Receive Date: 20130131
  Receipt Date: 20130131
  Transmission Date: 20140127
  Serious: No
  Sender: FDA-Public Use
  Company Number: US-ABBOTT-12P-163-1021711-00

PATIENT
  Sex: 0

DRUGS (3)
  1. HUMIRA [Suspect]
     Indication: PRODUCT USED FOR UNKNOWN INDICATION
  2. MTX [Concomitant]
     Indication: PRODUCT USED FOR UNKNOWN INDICATION
  3. MTX [Concomitant]
     Indication: PRODUCT USED FOR UNKNOWN INDICATION

REACTIONS (3)
  - Musculoskeletal stiffness [Unknown]
  - Pain [Unknown]
  - Drug ineffective [Unknown]
